FAERS Safety Report 25452911 (Version 6)
Quarter: 2025Q3

REPORT INFORMATION
  Report Type: Spontaneous
  Country: JP (occurrence: JP)
  Receive Date: 20250618
  Receipt Date: 20250911
  Transmission Date: 20251020
  Serious: Yes (Hospitalization, Other)
  Sender: ELI LILLY AND COMPANY
  Company Number: JP-ELI_LILLY_AND_COMPANY-JP202506011186

PATIENT
  Age: 43 Year
  Sex: Male

DRUGS (9)
  1. EBGLYSS [Suspect]
     Active Substance: LEBRIKIZUMAB-LBKZ
     Indication: Product used for unknown indication
     Route: 058
     Dates: start: 20250609, end: 20250612
  2. OLOPATADINE [Concomitant]
     Active Substance: OLOPATADINE
  3. RAMELTEON [Concomitant]
     Active Substance: RAMELTEON
  4. RIVOTRIL [Concomitant]
     Active Substance: CLONAZEPAM
  5. QUETIAPINE [Concomitant]
     Active Substance: QUETIAPINE
  6. FAMOTIDINE [Concomitant]
     Active Substance: FAMOTIDINE
  7. SUPLATAST TOSILATE [Concomitant]
     Active Substance: SUPLATAST TOSILATE
  8. DIFLUPREDNATE [Concomitant]
     Active Substance: DIFLUPREDNATE
  9. BEPOTASTINE BESYLATE [Concomitant]
     Active Substance: BEPOTASTINE BESYLATE

REACTIONS (5)
  - Splenic infarction [Recovered/Resolved]
  - Meningitis bacterial [Recovered/Resolved]
  - Cerebellar infarction [Recovered/Resolved]
  - Endocarditis [Recovered/Resolved]
  - Liver function test increased [Recovered/Resolved]

NARRATIVE: CASE EVENT DATE: 20250612
